FAERS Safety Report 9784686 (Version 1)
Quarter: 2013Q4

REPORT INFORMATION
  Report Type: Spontaneous
  Country: IT (occurrence: IT)
  Receive Date: 20131226
  Receipt Date: 20131226
  Transmission Date: 20140711
  Serious: No
  Sender: FDA-Public Use
  Company Number: IT-009507513-1312ITA009230

PATIENT
  Age: 49 Year
  Sex: Female

DRUGS (4)
  1. SYCREST [Suspect]
     Indication: SCHIZOPHRENIA
     Dosage: 10 MG, QD
     Route: 048
     Dates: start: 20131017, end: 20131017
  2. ETORICOXIB [Suspect]
     Route: 048
  3. EN [Concomitant]
     Dosage: FORMULATION: DROPS; 5 DROPS
     Route: 048
  4. DEPAKIN CHRONO [Concomitant]
     Route: 048

REACTIONS (2)
  - Choking sensation [Recovering/Resolving]
  - Anxiety [Recovering/Resolving]
